FAERS Safety Report 9650670 (Version 2)
Quarter: 2013Q4

REPORT INFORMATION
  Report Type: Report from Study
  Country: US (occurrence: US)
  Receive Date: 20131029
  Receipt Date: 20131029
  Transmission Date: 20140711
  Serious: Yes (Death)
  Sender: FDA-Public Use
  Company Number: US-ROCHE-1242595

PATIENT
  Age: 50 Year
  Sex: Male

DRUGS (5)
  1. RITUXAN [Suspect]
     Indication: NON-HODGKIN^S LYMPHOMA
     Route: 042
     Dates: start: 20130610
  2. MORPHINE SULFATE [Concomitant]
     Dosage: TAKE EVERY 3-4 HOURS PRN
     Route: 048
  3. PREDNISONE [Concomitant]
     Route: 048
  4. ALLOPURINOL [Concomitant]
     Route: 048
  5. ACETAMINOPHEN [Concomitant]
     Dosage: ONE TIME DOSE
     Route: 048
     Dates: start: 20130610, end: 20130610

REACTIONS (9)
  - Death [Fatal]
  - Fatigue [Unknown]
  - Insomnia [Unknown]
  - Pain [Unknown]
  - Decreased appetite [Unknown]
  - Diplopia [Unknown]
  - Muscular weakness [Unknown]
  - Bone pain [Unknown]
  - Abnormal loss of weight [Unknown]
